FAERS Safety Report 22535299 (Version 1)
Quarter: 2023Q2

REPORT INFORMATION
  Report Type: Spontaneous
  Country: US (occurrence: None)
  Receive Date: 20230607
  Receipt Date: 20230607
  Transmission Date: 20230722
  Serious: Yes (Hospitalization, Disabling)
  Sender: FDA-Public Use
  Company Number: None

PATIENT
  Age: 76 Year
  Sex: Female
  Weight: 65.25 kg

DRUGS (1)
  1. EMGALITY [Suspect]
     Active Substance: GALCANEZUMAB-GNLM
     Indication: Migraine
     Dosage: OTHER QUANTITY : 1 INJECTION(S);?OTHER FREQUENCY : ONCE  A MONTH;?
     Route: 058
     Dates: start: 20230303, end: 20230601

REACTIONS (8)
  - Depression [None]
  - Constipation [None]
  - Fatigue [None]
  - Brain fog [None]
  - Exercise tolerance decreased [None]
  - Chest pain [None]
  - Panic attack [None]
  - Depressed mood [None]

NARRATIVE: CASE EVENT DATE: 20230420
